FAERS Safety Report 16799347 (Version 5)
Quarter: 2019Q4

REPORT INFORMATION
  Report Type: Spontaneous
  Country: JP (occurrence: JP)
  Receive Date: 20190912
  Receipt Date: 20191106
  Transmission Date: 20200122
  Serious: Yes (Life-Threatening, Hospitalization, Other)
  Sender: FDA-Public Use
  Company Number: JP-ADVANZ PHARMA-201908000320

PATIENT

DRUGS (10)
  1. FYCOMPA [Suspect]
     Active Substance: PERAMPANEL
     Dosage: UP-TITRATION DOSE AND FREQUENCY UNKNOWN
     Route: 050
     Dates: start: 2018, end: 2018
  2. E KEPPRA [Concomitant]
     Active Substance: LEVETIRACETAM
     Indication: LAFORA^S MYOCLONIC EPILEPSY
     Dosage: 2000 MG
     Route: 050
     Dates: start: 20181206
  3. ZONISAMIDE. [Suspect]
     Active Substance: ZONISAMIDE
     Indication: LAFORA^S MYOCLONIC EPILEPSY
     Dosage: 300 MG TABLET
     Route: 050
     Dates: start: 20170104
  4. SODIUM VALPROATE [Concomitant]
     Active Substance: VALPROATE SODIUM
     Indication: LAFORA^S MYOCLONIC EPILEPSY
     Dosage: 1000 MG
     Route: 050
  5. MYOCALM [Concomitant]
     Active Substance: HERBALS\MINERALS\VITAMINS
     Indication: TENSION
     Dosage: 36 ML
     Route: 050
  6. TRICLORYL [Concomitant]
     Active Substance: TRICLOFOS SODIUM
     Indication: TENSION
     Dosage: 12 ML
     Route: 050
  7. FYCOMPA [Suspect]
     Active Substance: PERAMPANEL
     Dosage: 6 MG
     Route: 050
     Dates: start: 2018, end: 20190301
  8. MYSTAN [Concomitant]
     Active Substance: CLOBAZAM
     Indication: LAFORA^S MYOCLONIC EPILEPSY
     Dosage: 20 MG
     Route: 050
  9. FYCOMPA [Suspect]
     Active Substance: PERAMPANEL
     Indication: LAFORA^S MYOCLONIC EPILEPSY
     Dosage: 1 MG, QD
     Route: 050
     Dates: start: 20180718, end: 2018
  10. PHENOBAL [Suspect]
     Active Substance: PHENOBARBITAL
     Indication: LAFORA^S MYOCLONIC EPILEPSY
     Dosage: 150 MG, QD
     Route: 050
     Dates: start: 20181206, end: 20190102

REACTIONS (1)
  - Drug reaction with eosinophilia and systemic symptoms [Recovered/Resolved]

NARRATIVE: CASE EVENT DATE: 20181230
